FAERS Safety Report 23516407 (Version 1)
Quarter: 2024Q1

REPORT INFORMATION
  Report Type: Spontaneous
  Country: GB (occurrence: GB)
  Receive Date: 20240213
  Receipt Date: 20240213
  Transmission Date: 20240410
  Serious: No
  Sender: FDA-Public Use
  Company Number: None

PATIENT
  Age: 38 Year
  Sex: Male
  Weight: 60 kg

DRUGS (4)
  1. LINEZOLID [Suspect]
     Active Substance: LINEZOLID
     Indication: Product used for unknown indication
     Dosage: 600 MILLIGRAM, BID, FOR AT LEAST 6 MONTHS
     Route: 065
     Dates: start: 20230622
  2. AMIKACIN SULFATE [Concomitant]
     Active Substance: AMIKACIN SULFATE
     Indication: Product used for unknown indication
     Dosage: UNK, BID VIA NEBULISER
     Route: 065
     Dates: start: 20230907
  3. AZITHROMYCIN [Concomitant]
     Active Substance: AZITHROMYCIN
     Indication: Product used for unknown indication
     Dosage: UNK, OD FOR AT LEAST 6 MONTHS
     Route: 065
     Dates: start: 20230622
  4. CLOFAZIMINE [Concomitant]
     Active Substance: CLOFAZIMINE
     Indication: Product used for unknown indication
     Dosage: UNK, OD FOR AT LEAST 6 MONTHS
     Route: 065
     Dates: start: 20230622, end: 20230907

REACTIONS (1)
  - Dyspnoea [Recovering/Resolving]
